FAERS Safety Report 5713938-X (Version None)
Quarter: 2008Q2

REPORT INFORMATION
  Report Type: 
  Country: None (occurrence: None)
  Receive Date: 20080422
  Receipt Date: 20080422
  Transmission Date: 20081010
  Serious: Yes (Hospitalization)
  Sender: FDA-Public Use
  Company Number: None

PATIENT
  Sex: Male
  Weight: 86.1834 kg

DRUGS (6)
  1. LAMICTAL [Suspect]
     Indication: BIPOLAR DISORDER
     Dosage: 200 MG QAM PO 400 MG QHS PO
     Route: 048
     Dates: start: 20061009
  2. LAMICTAL [Suspect]
     Indication: BIPOLAR DISORDER
     Dosage: 200 MG QAM PO 400 MG QHS PO
     Route: 048
     Dates: start: 20080415
  3. REBIF [Concomitant]
  4. FLOMAX [Concomitant]
  5. CITALOPRAM HYDROBROMIDE [Concomitant]
  6. TRAZODONE HCL [Concomitant]

REACTIONS (3)
  - RASH MACULO-PAPULAR [None]
  - THERAPEUTIC RESPONSE UNEXPECTED [None]
  - URTICARIA [None]
